FAERS Safety Report 7620357-8 (Version None)
Quarter: 2011Q3

REPORT INFORMATION
  Report Type: 
  Country: None (occurrence: None)
  Receive Date: 20110718
  Receipt Date: 20110718
  Transmission Date: 20111222
  Serious: Yes (Life-Threatening, Hospitalization)
  Sender: FDA-Public Use
  Company Number: None

PATIENT
  Sex: Female

DRUGS (1)
  1. HALAVEN [Suspect]
     Indication: BREAST CANCER
     Route: 040
     Dates: start: 20110712, end: 20110712

REACTIONS (3)
  - NEOPLASM [None]
  - RESPIRATORY ARREST [None]
  - DEEP VEIN THROMBOSIS [None]
